FAERS Safety Report 25581500 (Version 1)
Quarter: 2025Q3

REPORT INFORMATION
  Report Type: Spontaneous
  Country: US (occurrence: US)
  Receive Date: 20250719
  Receipt Date: 20250719
  Transmission Date: 20251020
  Serious: No
  Sender: NOVO NORDISK
  Company Number: US-NOVOPROD-1388253

PATIENT
  Sex: Male

DRUGS (1)
  1. WEGOVY [Suspect]
     Active Substance: SEMAGLUTIDE
     Indication: Weight control
     Route: 058
     Dates: start: 202408

REACTIONS (4)
  - Ulcer [Recovered/Resolved]
  - Injection site erythema [Unknown]
  - Constipation [Recovered/Resolved]
  - Abdominal discomfort [Unknown]
